FAERS Safety Report 24240379 (Version 4)
Quarter: 2025Q4

REPORT INFORMATION
  Report Type: Spontaneous
  Country: US (occurrence: US)
  Receive Date: 20240822
  Receipt Date: 20251103
  Transmission Date: 20260118
  Serious: No
  Sender: MERCK SHARP & DOHME LLC
  Company Number: None

PATIENT
  Sex: Male
  Weight: 53.515 kg

DRUGS (20)
  1. SOTATERCEPT [Suspect]
     Active Substance: SOTATERCEPT
     Indication: Pulmonary arterial hypertension
     Dosage: DOSE DESCRIPTION : UNK
     Route: 065
     Dates: start: 2024
  2. SOTATERCEPT [Suspect]
     Active Substance: SOTATERCEPT
  3. SOTATERCEPT [Suspect]
     Active Substance: SOTATERCEPT
  4. SOTATERCEPT [Suspect]
     Active Substance: SOTATERCEPT
  5. REMODULIN [Suspect]
     Active Substance: TREPROSTINIL
     Indication: Pulmonary arterial hypertension
     Dosage: DOSE DESCRIPTION : 0.2 MICROGRAM PER KILOGRAM, FREQ: CONTINUING?CONCENTRATION: 10 MILLIGRAM PER M...
     Route: 041
     Dates: start: 20240701
  6. REMODULIN [Suspect]
     Active Substance: TREPROSTINIL
     Indication: Pulmonary arterial hypertension
     Dosage: DOSE DESCRIPTION : DOSE: UNKNOWN, FREQ: CONTINUING
     Route: 041
     Dates: start: 20240819
  7. REMODULIN [Suspect]
     Active Substance: TREPROSTINIL
     Indication: Pulmonary arterial hypertension
     Dosage: DOSE DESCRIPTION : THE CURRENT DOSE: 0.2 MICROGRAM PER KILOGRAM, FREQ: CONTINUING
     Route: 041
     Dates: start: 2024
  8. REMODULIN [Suspect]
     Active Substance: TREPROSTINIL
     Indication: Pulmonary arterial hypertension
     Dosage: 0.162  G/KG, CONTINUING, IV DRIP
     Route: 041
  9. REMODULIN [Suspect]
     Active Substance: TREPROSTINIL
     Indication: Pulmonary arterial hypertension
     Dosage: 0.159 ?G/KG, CONTINUING, IV ?REGIMEN # 2 DRIP
     Route: 041
  10. SODIUM CHLORIDE [Concomitant]
     Active Substance: SODIUM CHLORIDE
  11. ESOMEPRAZOLE MAGNESIUM [Concomitant]
     Active Substance: ESOMEPRAZOLE MAGNESIUM
  12. IRON [Concomitant]
     Active Substance: IRON
  13. TADALAFIL [Concomitant]
     Active Substance: TADALAFIL
  14. LOPERAMIDE HYDROCHLORIDE [Concomitant]
     Active Substance: LOPERAMIDE HYDROCHLORIDE
  15. LETAIRIS [Concomitant]
     Active Substance: AMBRISENTAN
  16. VITAMINS [Concomitant]
     Active Substance: VITAMINS
  17. ACETAMINOPHEN [Concomitant]
     Active Substance: ACETAMINOPHEN
  18. ONDANSETRON HYDROCHLORIDE [Concomitant]
     Active Substance: ONDANSETRON HYDROCHLORIDE
  19. POTASSIUM CHLORIDE [Concomitant]
     Active Substance: POTASSIUM CHLORIDE
  20. FAMOTIDINE [Concomitant]
     Active Substance: FAMOTIDINE

REACTIONS (7)
  - Energy increased [Recovered/Resolved]
  - Laboratory test abnormal [Unknown]
  - Ill-defined disorder [Recovered/Resolved]
  - Fatigue [Unknown]
  - Platelet count decreased [Unknown]
  - Weight increased [Unknown]
  - Increased appetite [Unknown]

NARRATIVE: CASE EVENT DATE: 20240101
